FAERS Safety Report 5053888-8 (Version None)
Quarter: 2006Q3

REPORT INFORMATION
  Report Type: 
  Country: None (occurrence: None)
  Receive Date: 20060718
  Receipt Date: 20060421
  Transmission Date: 20061208
  Serious: Yes (Other)
  Sender: FDA-Public Use
  Company Number: US-GLAXOSMITHKLINE-A0602783A

PATIENT
  Age: 87 Year
  Sex: Male

DRUGS (8)
  1. DEBROX DROPS [Suspect]
     Dosage: 10DROP SINGLE DOSE
     Route: 001
     Dates: start: 20060420, end: 20060420
  2. LIPITOR [Concomitant]
  3. TOPROL-XL [Concomitant]
  4. NEXIUM [Concomitant]
  5. POTASSIUM [Concomitant]
  6. FUROSEMIDE [Concomitant]
  7. CENTRUM SILVER [Concomitant]
  8. METFORMIN [Concomitant]

REACTIONS (2)
  - DIPLOPIA [None]
  - HALLUCINATION, VISUAL [None]
